FAERS Safety Report 22029269 (Version 1)
Quarter: 2023Q1

REPORT INFORMATION
  Report Type: Spontaneous
  Country: US (occurrence: US)
  Receive Date: 20230223
  Receipt Date: 20230223
  Transmission Date: 20230418
  Serious: Yes (Other)
  Sender: FDA-Public Use
  Company Number: US-BRISTOL-MYERS SQUIBB COMPANY-2023-026808

PATIENT
  Age: 72 Year
  Sex: Female
  Weight: 69.9 kg

DRUGS (1)
  1. REVLIMID [Suspect]
     Active Substance: LENALIDOMIDE
     Indication: Plasma cell myeloma
     Dosage: 5 MG, QD X 21 DAYS  ON 7 DAYS OFF
     Route: 048
     Dates: start: 20220112

REACTIONS (1)
  - Neutropenia [Unknown]
